FAERS Safety Report 7259494-9 (Version None)
Quarter: 2011Q1

REPORT INFORMATION
  Report Type: 
  Country: None (occurrence: None)
  Receive Date: 20110130
  Receipt Date: 20101108
  Transmission Date: 20110831
  Serious: No
  Sender: FDA-Public Use
  Company Number: PR-ABBOTT-10P-131-0680133-00

PATIENT
  Sex: Female
  Weight: 79.45 kg

DRUGS (6)
  1. DIOVAN HCT [Concomitant]
     Indication: HYPERTENSION
     Dosage: 25/160MG
     Route: 048
  2. NORVASC [Concomitant]
     Indication: HYPERTENSION
     Route: 048
  3. HUMIRA [Suspect]
     Indication: RHEUMATOID ARTHRITIS
     Route: 058
     Dates: start: 20101001, end: 20101001
  4. HUMALOG [Concomitant]
     Indication: DIABETES MELLITUS
     Dosage: 35 UNITS AM 30 UNITS AFTERNOON
     Route: 058
  5. JANUMET [Concomitant]
     Indication: DIABETES MELLITUS
     Dosage: 50/1000MG
     Route: 048
  6. METHOTREXATE [Concomitant]
     Indication: RHEUMATOID ARTHRITIS
     Route: 058

REACTIONS (4)
  - CYSTITIS [None]
  - INJECTION SITE REACTION [None]
  - INJECTION SITE ABSCESS [None]
  - OTITIS MEDIA [None]
